FAERS Safety Report 18739350 (Version 3)
Quarter: 2022Q3

REPORT INFORMATION
  Report Type: Spontaneous
  Country: DE (occurrence: DE)
  Receive Date: 20210114
  Receipt Date: 20220826
  Transmission Date: 20221027
  Serious: Yes (Hospitalization)
  Sender: FDA-Public Use
  Company Number: DE-002147023-NVSC2019DE064218

PATIENT
  Sex: Female

DRUGS (5)
  1. CELECOXIB [Suspect]
     Active Substance: CELECOXIB
     Indication: Axial spondyloarthritis
     Dosage: 200 MILLIGRAM, QD
     Route: 065
     Dates: start: 20200504
  2. ACEMETACIN [Suspect]
     Active Substance: ACEMETACIN
     Indication: Axial spondyloarthritis
     Dosage: 180 MILLIGRAM, QD (180 MILLIGRAM DAILY)
     Route: 065
     Dates: start: 20170906, end: 20200215
  3. HYDROXYCHLOROQUINE [Suspect]
     Active Substance: HYDROXYCHLOROQUINE
     Indication: Axial spondyloarthritis
     Dosage: 300 MILLIGRAM, QD
     Route: 065
     Dates: start: 20191025
  4. HYDROXYCHLOROQUINE [Suspect]
     Active Substance: HYDROXYCHLOROQUINE
     Dosage: 400 MILLIGRAM, QD
     Route: 065
     Dates: start: 20200803
  5. SULFASALAZINE [Suspect]
     Active Substance: SULFASALAZINE
     Indication: Axial spondyloarthritis
     Dosage: 2000 MILLIGRAM, QD (2000 MILLIGRAM DAILY)
     Route: 065
     Dates: start: 20110201, end: 20200715

REACTIONS (5)
  - Spinal osteoarthritis [Unknown]
  - Systemic lupus erythematosus [Unknown]
  - Neck pain [Unknown]
  - Off label use [Unknown]
  - Product use in unapproved indication [Unknown]

NARRATIVE: CASE EVENT DATE: 20190509
